FAERS Safety Report 6153436-5 (Version None)
Quarter: 2009Q2

REPORT INFORMATION
  Report Type: 
  Country: None (occurrence: None)
  Receive Date: 20090409
  Receipt Date: 20090409
  Transmission Date: 20091009
  Serious: Yes (Other)
  Sender: FDA-Public Use
  Company Number: None

PATIENT
  Sex: Male
  Weight: 74.8435 kg

DRUGS (1)
  1. LEVAQUIN [Suspect]
     Indication: ORCHITIS
     Dosage: 10  1 DAILY
     Dates: start: 20081211, end: 20081221

REACTIONS (2)
  - ABDOMINAL PAIN UPPER [None]
  - ERUCTATION [None]
